FAERS Safety Report 16842629 (Version 2)
Quarter: 2019Q3

REPORT INFORMATION
  Report Type: Report from Study
  Country: None (occurrence: PR)
  Receive Date: 20190924
  Receipt Date: 20190928
  Transmission Date: 20191005
  Serious: Yes (Other)
  Sender: FDA-Public Use
  Company Number: PR-ABBVIE-19K-131-2933614-00

PATIENT
  Age: 66 Year
  Sex: Male
  Weight: 91.71 kg

DRUGS (2)
  1. HUMIRA [Suspect]
     Active Substance: ADALIMUMAB
     Indication: RHEUMATOID ARTHRITIS
     Route: 058
  2. HUMIRA [Suspect]
     Active Substance: ADALIMUMAB
     Indication: RHEUMATOID ARTHRITIS
     Route: 058
     Dates: start: 20120515

REACTIONS (2)
  - Peripheral artery occlusion [Not Recovered/Not Resolved]
  - Arterial stent insertion [Recovered/Resolved]

NARRATIVE: CASE EVENT DATE: 20190812
